FAERS Safety Report 19195581 (Version 2)
Quarter: 2022Q2

REPORT INFORMATION
  Report Type: Spontaneous
  Country: US (occurrence: US)
  Receive Date: 20210429
  Receipt Date: 20220506
  Transmission Date: 20220720
  Serious: No
  Sender: FDA-Public Use
  Company Number: US-PFIZER INC-2021367700

PATIENT
  Age: 65 Year
  Sex: Female

DRUGS (2)
  1. SKELAXIN [Suspect]
     Active Substance: METAXALONE
     Indication: Pain
     Dosage: UNK
  2. SKELAXIN [Suspect]
     Active Substance: METAXALONE
     Indication: Muscle spasms
     Dosage: 800 MG, 4X/DAY
     Route: 048
     Dates: start: 20210825, end: 20211123

REACTIONS (8)
  - Illness [Unknown]
  - Disturbance in attention [Unknown]
  - Depressed mood [Unknown]
  - Crying [Unknown]
  - Stress [Unknown]
  - Mental disorder [Unknown]
  - Migraine [Unknown]
  - Intentional product misuse [Unknown]
